FAERS Safety Report 7584695-X (Version None)
Quarter: 2011Q2

REPORT INFORMATION
  Report Type: 
  Country: None (occurrence: None)
  Receive Date: 20110630
  Receipt Date: 20110617
  Transmission Date: 20111010
  Serious: Yes (Hospitalization, Other)
  Sender: FDA-Public Use
  Company Number: PHHY2011JP54472

PATIENT
  Age: 75 Year
  Sex: Male

DRUGS (7)
  1. FAMOTIDINE [Concomitant]
     Dosage: 40 MG, UNK
     Route: 048
     Dates: start: 20081001
  2. DIOVAN [Suspect]
     Indication: HYPERTENSION
     Dosage: 80 MG, DAILY
     Route: 048
     Dates: start: 20081205
  3. ZESTRIL [Concomitant]
     Dosage: 10 DF, UNK
     Route: 048
     Dates: start: 20081006
  4. MUCOSTA [Concomitant]
     Dosage: 300 MG, UNK
     Route: 048
     Dates: start: 20081001
  5. AMINOLEBAN [Concomitant]
     Dosage: 50 MG, UNK
     Route: 048
     Dates: start: 20081001
  6. GLIMICRON [Concomitant]
     Dosage: 20 MG, UNK
     Route: 048
     Dates: start: 20081001
  7. ATELEC [Concomitant]
     Dosage: 10 DF, UNK
     Route: 048
     Dates: start: 20081006

REACTIONS (2)
  - CEREBRAL INFARCTION [None]
  - PARALYSIS [None]
